FAERS Safety Report 7200548-0 (Version None)
Quarter: 2010Q4

REPORT INFORMATION
  Report Type: 
  Country: None (occurrence: None)
  Receive Date: 20101228
  Receipt Date: 20101220
  Transmission Date: 20110411
  Serious: Yes (Hospitalization)
  Sender: FDA-Public Use
  Company Number: NL-B.I. PHARMACEUTICALS,INC./RIDGEFIELD-2010-DE-07111GD

PATIENT
  Age: 51 Year
  Sex: Female

DRUGS (3)
  1. PERSANTIN [Suspect]
     Dosage: 12 G
     Route: 048
  2. OXAZEPAM [Suspect]
     Dosage: 200 MG
     Route: 048
  3. TEMAZEPAM [Suspect]
     Dosage: 1 G
     Route: 048

REACTIONS (11)
  - ATRIOVENTRICULAR BLOCK FIRST DEGREE [None]
  - CHEST PAIN [None]
  - DRUG ABUSE [None]
  - HEADACHE [None]
  - HYPOTENSION [None]
  - INTENTIONAL OVERDOSE [None]
  - LOSS OF CONSCIOUSNESS [None]
  - PLATELET FUNCTION TEST ABNORMAL [None]
  - SOMNOLENCE [None]
  - SUICIDE ATTEMPT [None]
  - VOMITING [None]
